FAERS Safety Report 8354558-0 (Version None)
Quarter: 2012Q2

REPORT INFORMATION
  Report Type: 
  Country: None (occurrence: None)
  Receive Date: 20120511
  Receipt Date: 20120503
  Transmission Date: 20120825
  Serious: Yes (Other)
  Sender: FDA-Public Use
  Company Number: US-VERTEX PHARMACEUTICALS INC.-AE-2012-005601

PATIENT
  Sex: Male
  Weight: 94.886 kg

DRUGS (3)
  1. INCIVEK [Suspect]
     Indication: HEPATITIS C
     Route: 048
     Dates: start: 20111010, end: 20111207
  2. RIBAVIRIN [Concomitant]
     Indication: HEPATITIS C
     Dates: start: 20111010, end: 20111207
  3. PEGASYS [Concomitant]
     Indication: HEPATITIS C
     Dates: start: 20111010, end: 20111207

REACTIONS (5)
  - PRURITUS [None]
  - RASH GENERALISED [None]
  - SKIN BURNING SENSATION [None]
  - PSYCHOTIC DISORDER [None]
  - POOR QUALITY SLEEP [None]
